FAERS Safety Report 5582830-6 (Version None)
Quarter: 2008Q1

REPORT INFORMATION
  Report Type: 
  Country: None (occurrence: None)
  Receive Date: 20080107
  Receipt Date: 20071231
  Transmission Date: 20080703
  Serious: Yes (Hospitalization)
  Sender: FDA-Public Use
  Company Number: PT-BAXTER-2007BH009806

PATIENT
  Sex: Male

DRUGS (6)
  1. EXTRANEAL [Suspect]
     Indication: PERITONEAL DIALYSIS
     Dosage: DOSE UNIT:UNKNOWN
     Route: 033
     Dates: end: 20070101
  2. PHYSIOSOL IN PLASTIC CONTAINER [Suspect]
     Indication: PERITONEAL DIALYSIS
     Dosage: DOSE UNIT:UNKNOWN
     Route: 033
     Dates: end: 20070101
  3. VITAMIN B COMPLEX CAP [Concomitant]
     Dosage: DOSE UNIT:UNKNOWN
     Route: 065
  4. LASIX [Concomitant]
     Dosage: DOSE UNIT:UNKNOWN
     Route: 065
  5. FOLIC ACID [Concomitant]
     Dosage: DOSE UNIT:UNKNOWN
     Route: 065
  6. CINCALCET [Concomitant]
     Dosage: DOSE UNIT:UNKNOWN
     Route: 065

REACTIONS (2)
  - CATHETER SITE INFECTION [None]
  - FUNGAL PERITONITIS [None]
